FAERS Safety Report 6865443-5 (Version None)
Quarter: 2010Q3

REPORT INFORMATION
  Report Type: 
  Country: None (occurrence: None)
  Receive Date: 20100721
  Receipt Date: 20080422
  Transmission Date: 20110219
  Serious: No
  Sender: FDA-Public Use
  Company Number: US-PFIZER INC-2008036030

PATIENT
  Sex: Female
  Weight: 69.545 kg

DRUGS (5)
  1. CHANTIX [Suspect]
     Indication: SMOKING CESSATION THERAPY
     Route: 048
     Dates: start: 20080414
  2. LISINOPRIL [Concomitant]
     Indication: HYPERTENSION
     Route: 048
  3. LEXAPRO [Concomitant]
     Route: 048
  4. REMERON [Concomitant]
     Route: 048
  5. DARIFENACIN HYDROBROMIDE [Concomitant]
     Route: 048

REACTIONS (3)
  - HEADACHE [None]
  - MIGRAINE [None]
  - MOOD ALTERED [None]
